FAERS Safety Report 19185833 (Version 1)
Quarter: 2021Q2

REPORT INFORMATION
  Report Type: Report from Study
  Country: US (occurrence: US)
  Receive Date: 20210427
  Receipt Date: 20210427
  Transmission Date: 20210717
  Serious: No
  Sender: FDA-Public Use
  Company Number: US-GW PHARMA-202104USGW01934

PATIENT

DRUGS (5)
  1. OXCARBAZEPINE. [Concomitant]
     Active Substance: OXCARBAZEPINE
     Indication: LENNOX-GASTAUT SYNDROME
     Dosage: UNK
     Route: 065
  2. PHENYTOIN. [Concomitant]
     Active Substance: PHENYTOIN
     Indication: LENNOX-GASTAUT SYNDROME
     Dosage: UNK
     Route: 065
  3. DIAZEPAM. [Concomitant]
     Active Substance: DIAZEPAM
     Indication: LENNOX-GASTAUT SYNDROME
     Dosage: UNK
     Route: 065
  4. EPIDIOLEX [Suspect]
     Active Substance: CANNABIDIOL
     Indication: LENNOX-GASTAUT SYNDROME
     Dosage: 2.90MG/KG/DAY, 600 MILLIGRAM, QD
     Route: 048
     Dates: start: 2020
  5. LORAZEPAM. [Concomitant]
     Active Substance: LORAZEPAM
     Indication: LENNOX-GASTAUT SYNDROME
     Dosage: UNK
     Route: 065

REACTIONS (1)
  - Condition aggravated [Unknown]
